FAERS Safety Report 25515643 (Version 1)
Quarter: 2025Q3

REPORT INFORMATION
  Report Type: Spontaneous
  Country: EU (occurrence: EU)
  Receive Date: 20250704
  Receipt Date: 20250704
  Transmission Date: 20251020
  Serious: Yes (Hospitalization, Disabling, Other)
  Sender: SANDOZ
  Company Number: EU-ROCHE-2815247

PATIENT
  Age: 49 Year
  Sex: Male
  Weight: 85 kg

DRUGS (36)
  1. ACYCLOVIR [Suspect]
     Active Substance: ACYCLOVIR
     Indication: Varicella zoster virus infection
     Route: 065
     Dates: start: 201509
  2. CYCLOPHOSPHAMIDE [Suspect]
     Active Substance: CYCLOPHOSPHAMIDE
     Route: 042
     Dates: start: 20141118
  3. CYCLOPHOSPHAMIDE [Suspect]
     Active Substance: CYCLOPHOSPHAMIDE
     Route: 065
     Dates: start: 20141119, end: 20150407
  4. CYCLOPHOSPHAMIDE [Suspect]
     Active Substance: CYCLOPHOSPHAMIDE
     Indication: Chronic lymphocytic leukaemia
     Route: 042
     Dates: start: 20141118, end: 20150407
  5. CYCLOPHOSPHAMIDE [Suspect]
     Active Substance: CYCLOPHOSPHAMIDE
     Route: 065
     Dates: start: 20141216, end: 20150407
  6. FLUDARABINE [Suspect]
     Active Substance: FLUDARABINE PHOSPHATE
     Route: 042
     Dates: start: 20141118
  7. FLUDARABINE [Suspect]
     Active Substance: FLUDARABINE PHOSPHATE
     Route: 042
     Dates: start: 20141119
  8. FLUDARABINE [Suspect]
     Active Substance: FLUDARABINE PHOSPHATE
     Route: 042
     Dates: start: 20150313
  9. FLUDARABINE [Suspect]
     Active Substance: FLUDARABINE PHOSPHATE
     Route: 042
     Dates: start: 20150310
  10. FLUDARABINE [Suspect]
     Active Substance: FLUDARABINE PHOSPHATE
     Route: 042
     Dates: start: 20150312
  11. FLUDARABINE [Suspect]
     Active Substance: FLUDARABINE PHOSPHATE
     Route: 042
     Dates: start: 20141216
  12. FLUDARABINE [Suspect]
     Active Substance: FLUDARABINE PHOSPHATE
     Route: 042
     Dates: start: 20150113
  13. FLUDARABINE [Suspect]
     Active Substance: FLUDARABINE PHOSPHATE
     Route: 042
     Dates: start: 20150114
  14. FLUDARABINE [Suspect]
     Active Substance: FLUDARABINE PHOSPHATE
     Route: 042
     Dates: start: 20150115
  15. FLUDARABINE [Suspect]
     Active Substance: FLUDARABINE PHOSPHATE
     Route: 042
     Dates: start: 20150407
  16. FLUDARABINE [Suspect]
     Active Substance: FLUDARABINE PHOSPHATE
     Route: 042
     Dates: start: 201502
  17. FLUDARABINE [Suspect]
     Active Substance: FLUDARABINE PHOSPHATE
     Indication: Chronic lymphocytic leukaemia
     Route: 065
     Dates: start: 20141118, end: 20150407
  18. OBINUTUZUMAB [Suspect]
     Active Substance: OBINUTUZUMAB
     Route: 042
     Dates: start: 20141118, end: 20150407
  19. OBINUTUZUMAB [Suspect]
     Active Substance: OBINUTUZUMAB
     Route: 042
     Dates: start: 20141216
  20. OBINUTUZUMAB [Suspect]
     Active Substance: OBINUTUZUMAB
     Route: 042
     Dates: start: 20150113
  21. OBINUTUZUMAB [Suspect]
     Active Substance: OBINUTUZUMAB
     Route: 042
     Dates: start: 20150310
  22. OBINUTUZUMAB [Suspect]
     Active Substance: OBINUTUZUMAB
     Route: 042
     Dates: start: 20150407
  23. OBINUTUZUMAB [Suspect]
     Active Substance: OBINUTUZUMAB
     Route: 042
     Dates: start: 201502
  24. OBINUTUZUMAB [Suspect]
     Active Substance: OBINUTUZUMAB
     Indication: Chronic lymphocytic leukaemia
     Route: 042
     Dates: start: 20141118, end: 20150407
  25. KIOVIG [Suspect]
     Active Substance: HUMAN IMMUNOGLOBULIN G
     Indication: Immunoglobulins decreased
     Route: 065
  26. LEVETIRACETAM [Suspect]
     Active Substance: LEVETIRACETAM
     Indication: Epilepsy
     Route: 065
     Dates: start: 20160727, end: 20170710
  27. PRIVIGEN [Suspect]
     Active Substance: HUMAN IMMUNOGLOBULIN G
     Indication: Chronic lymphocytic leukaemia
     Route: 065
     Dates: start: 20160323
  28. URSODIOL [Suspect]
     Active Substance: URSODIOL
     Indication: Drug-induced liver injury
     Route: 065
     Dates: start: 201602, end: 201603
  29. ALLOPURINOL [Concomitant]
     Active Substance: ALLOPURINOL
     Indication: Product used for unknown indication
     Dosage: 300 MG, QD
     Route: 065
  30. AMPHOTERICIN B [Concomitant]
     Active Substance: AMPHOTERICIN B
     Indication: Product used for unknown indication
     Route: 065
  31. LEUCOVORIN CALCIUM [Concomitant]
     Active Substance: LEUCOVORIN CALCIUM
     Indication: Product used for unknown indication
     Dosage: 15 MG, QD
     Route: 065
  32. CIPROFLOXACIN [Concomitant]
     Active Substance: CIPROFLOXACIN
     Indication: Product used for unknown indication
     Route: 065
  33. CHOLECALCIFEROL [Concomitant]
     Active Substance: CHOLECALCIFEROL
     Indication: Product used for unknown indication
     Dosage: 20000 IU, QD
     Route: 065
  34. Jonosteril [Concomitant]
     Indication: Product used for unknown indication
     Route: 065
  35. PANTOPRAZOLE SODIUM [Concomitant]
     Active Substance: PANTOPRAZOLE SODIUM
     Indication: Product used for unknown indication
     Route: 065
  36. PREDNISOLONE SODIUM SUCCINATE [Concomitant]
     Active Substance: PREDNISOLONE SODIUM SUCCINATE
     Indication: Product used for unknown indication
     Route: 065
     Dates: start: 201411

REACTIONS (48)
  - Epilepsy [Not Recovered/Not Resolved]
  - Central nervous system lesion [Not Recovered/Not Resolved]
  - Encephalitis [Unknown]
  - Retinitis viral [Recovered/Resolved]
  - Blindness unilateral [Not Recovered/Not Resolved]
  - Toxoplasmosis [Unknown]
  - Necrotising retinitis [Not Recovered/Not Resolved]
  - Hemiparesis [Unknown]
  - Varicella zoster virus infection [Recovered/Resolved]
  - Large intestinal stenosis [Recovered/Resolved]
  - Respiratory failure [Unknown]
  - Ill-defined disorder [Unknown]
  - Colitis [Recovered/Resolved]
  - Drug-induced liver injury [Not Recovered/Not Resolved]
  - Febrile neutropenia [Unknown]
  - Cytopenia [Unknown]
  - Bacterial disease carrier [Unknown]
  - Basal cell carcinoma [Not Recovered/Not Resolved]
  - Syncope [Unknown]
  - Pneumonia [Unknown]
  - Myelosuppression [Unknown]
  - Neutropenia [Unknown]
  - Gallbladder polyp [Unknown]
  - Rectal tenesmus [Unknown]
  - Pruritus allergic [Unknown]
  - Drug hypersensitivity [Unknown]
  - Blepharospasm [Recovered/Resolved]
  - Cataract subcapsular [Unknown]
  - Dizziness [Unknown]
  - Blood pressure increased [Recovered/Resolved]
  - Pain [Unknown]
  - Abdominal pain upper [Unknown]
  - Dermatitis atopic [Unknown]
  - Gallbladder polyp [Unknown]
  - Liver function test increased [Not Recovered/Not Resolved]
  - Folliculitis [Unknown]
  - Impulse-control disorder [Recovered/Resolved]
  - Weight decreased [Not Recovered/Not Resolved]
  - Mucosal disorder [Unknown]
  - Leukopenia [Unknown]
  - Diarrhoea [Recovered/Resolved]
  - Pyrexia [Recovered/Resolved]
  - Cough [Recovered/Resolved]
  - Fungal infection [Unknown]
  - Abdominal pain [Unknown]
  - Nephropathy toxic [Unknown]
  - Nausea [Unknown]
  - Hypersensitivity [Recovered/Resolved]

NARRATIVE: CASE EVENT DATE: 20150301
